FAERS Safety Report 6041545-0 (Version None)
Quarter: 2009Q1

REPORT INFORMATION
  Report Type: 
  Country: None (occurrence: None)
  Receive Date: 20090116
  Receipt Date: 20090112
  Transmission Date: 20090719
  Serious: Yes (Hospitalization)
  Sender: FDA-Public Use
  Company Number: A0728405A

PATIENT
  Age: 52 Year
  Sex: Female
  Weight: 122.7 kg

DRUGS (3)
  1. AVANDIA [Suspect]
     Dosage: 2MG PER DAY
     Route: 048
     Dates: start: 20020201, end: 20070501
  2. METFORMIN [Concomitant]
  3. ALPRAZOLAM [Concomitant]

REACTIONS (3)
  - CARDIAC FAILURE CONGESTIVE [None]
  - HEART INJURY [None]
  - MYOCARDIAL INFARCTION [None]
